FAERS Safety Report 13769098 (Version 1)
Quarter: 2017Q3

REPORT INFORMATION
  Report Type: Spontaneous
  Country: US (occurrence: US)
  Receive Date: 20170719
  Receipt Date: 20170719
  Transmission Date: 20171127
  Serious: Yes (Other)
  Sender: FDA-Public Use
  Company Number: US-ASTRAZENECA-2017SE72167

PATIENT
  Age: 48 Year
  Sex: Male
  Weight: 90.7 kg

DRUGS (9)
  1. VITAMIN B12 [Concomitant]
     Active Substance: CYANOCOBALAMIN
     Indication: ASTHENIA
     Route: 048
  2. TURMERIC [Concomitant]
     Active Substance: HERBALS\TURMERIC
     Indication: PAIN
     Route: 048
     Dates: start: 201705
  3. VITAMIN D 3 [Concomitant]
     Indication: MOOD ALTERED
     Route: 048
  4. VITAMIN C [Concomitant]
     Active Substance: ASCORBIC ACID
     Route: 048
  5. CRESTOR [Suspect]
     Active Substance: ROSUVASTATIN CALCIUM
     Indication: BLOOD CHOLESTEROL ABNORMAL
     Dosage: AT NIGHT
     Route: 048
     Dates: start: 1990, end: 2005
  6. CRESTOR [Suspect]
     Active Substance: ROSUVASTATIN CALCIUM
     Indication: BLOOD CHOLESTEROL ABNORMAL
     Dosage: ROSUVASTATIN, 10 MG AT NIGHT
     Route: 048
     Dates: start: 201706
  7. GLUCOSAMINE [Concomitant]
     Active Substance: GLUCOSAMINE
     Indication: ARTHRALGIA
     Route: 048
     Dates: start: 1997
  8. ECOTRIN [Concomitant]
     Active Substance: ASPIRIN
     Indication: BLOOD PRESSURE ABNORMAL
     Route: 048
  9. METOPROLOL TARTRATE. [Suspect]
     Active Substance: METOPROLOL TARTRATE
     Indication: BLOOD PRESSURE ABNORMAL
     Route: 048
     Dates: start: 1997

REACTIONS (10)
  - Cerebrovascular accident [Unknown]
  - Arthralgia [Unknown]
  - Dizziness [Unknown]
  - Loss of libido [Unknown]
  - Weight increased [Unknown]
  - Lethargy [Unknown]
  - Myalgia [Unknown]
  - Balance disorder [Unknown]
  - Carotid artery perforation [Unknown]
  - Hypertension [Unknown]

NARRATIVE: CASE EVENT DATE: 2005
